FAERS Safety Report 5968270-6 (Version None)
Quarter: 2008Q4

REPORT INFORMATION
  Report Type: 
  Country: None (occurrence: None)
  Receive Date: 20081126
  Receipt Date: 20081117
  Transmission Date: 20090506
  Serious: Yes (Life-Threatening)
  Sender: FDA-Public Use
  Company Number: JP-TYCO HEALTHCARE/MALLINCKRODT-T200801225

PATIENT

DRUGS (10)
  1. OPTIRAY 300 [Suspect]
     Indication: COMPUTERISED TOMOGRAM ABDOMEN
     Dosage: 96 ML, SINGLE
     Route: 042
     Dates: start: 20080702, end: 20080702
  2. ASPIRIN [Concomitant]
     Dosage: UNK
     Route: 048
     Dates: start: 19930601
  3. NIFEDIPINE [Concomitant]
     Dosage: ONE TAB, BID
     Route: 048
     Dates: start: 19930601
  4. NICORANDIL [Concomitant]
     Dosage: ONE TAB BID
     Route: 048
     Dates: start: 19930601
  5. SULPIRIDE [Concomitant]
     Dosage: ONE TAB, BID
     Route: 048
     Dates: start: 19930601
  6. ATORVASTATIN CALCIUM [Concomitant]
     Dosage: ONE TAB, BID
     Route: 048
     Dates: start: 19930601
  7. FUROSEMIDE [Concomitant]
     Dosage: 0.5 TAB
     Route: 048
     Dates: start: 19930601
  8. SUCRALFATE [Concomitant]
     Dosage: ONE DF
     Route: 048
     Dates: start: 19930601
  9. TRIAZOLAM [Concomitant]
     Dosage: ONE TAB
     Route: 048
     Dates: start: 19930601
  10. WARFARIN POTASSIUM [Concomitant]
     Dosage: ONE TAB
     Route: 048
     Dates: start: 19930601

REACTIONS (1)
  - ANAPHYLACTIC SHOCK [None]
